FAERS Safety Report 7820409-3 (Version None)
Quarter: 2011Q4

REPORT INFORMATION
  Report Type: 
  Country: None (occurrence: None)
  Receive Date: 20111018
  Receipt Date: 20111003
  Transmission Date: 20120403
  Serious: Yes (Hospitalization, Other)
  Sender: FDA-Public Use
  Company Number: GB-ROCHE-1003843

PATIENT
  Sex: Female
  Weight: 85.8 kg

DRUGS (4)
  1. LANSOPRAZOLE [Concomitant]
  2. XOLAIR [Suspect]
     Indication: ASTHMA
     Route: 058
     Dates: start: 20061211, end: 20110912
  3. MONTELUKAST SODIUM [Concomitant]
  4. SYMBICORT [Concomitant]

REACTIONS (1)
  - ANAPHYLACTIC REACTION [None]
